FAERS Safety Report 7971245-9 (Version None)
Quarter: 2011Q4

REPORT INFORMATION
  Report Type: 
  Country: None (occurrence: None)
  Receive Date: 20111212
  Receipt Date: 20111209
  Transmission Date: 20120403
  Serious: Yes (Other)
  Sender: FDA-Public Use
  Company Number: US-PFIZER INC-2011258618

PATIENT
  Sex: Female
  Weight: 56.236 kg

DRUGS (2)
  1. CHANTIX [Suspect]
     Indication: SMOKING CESSATION THERAPY
     Dosage: 0.5 MG, 1X/DAY
     Route: 048
     Dates: start: 20110930, end: 20110101
  2. CHANTIX [Suspect]
     Dosage: 1 MG, 2X/DAY
     Route: 048
     Dates: start: 20110101

REACTIONS (18)
  - AGGRESSION [None]
  - MOOD SWINGS [None]
  - ANGER [None]
  - FATIGUE [None]
  - SOMNOLENCE [None]
  - MIGRAINE [None]
  - DYSPEPSIA [None]
  - STRESS [None]
  - CRYING [None]
  - NERVOUSNESS [None]
  - FEELING ABNORMAL [None]
  - IRRITABILITY [None]
  - CONSTIPATION [None]
  - DRUG INEFFECTIVE [None]
  - ABDOMINAL DISCOMFORT [None]
  - INSOMNIA [None]
  - ANXIETY [None]
  - NAUSEA [None]
